FAERS Safety Report 6694240-9 (Version None)
Quarter: 2010Q2

REPORT INFORMATION
  Report Type: 
  Country: None (occurrence: None)
  Receive Date: 20100423
  Receipt Date: 20100414
  Transmission Date: 20101027
  Serious: Yes (Other)
  Sender: FDA-Public Use
  Company Number: US-ROCHE-698483

PATIENT
  Sex: Female

DRUGS (2)
  1. PEGASYS [Suspect]
     Indication: HEPATITIS C
     Dosage: FORM:PRE FILLED SYRINGE
     Route: 065
     Dates: start: 20100108
  2. RIBAVIRIN [Suspect]
     Indication: HEPATITIS C
     Route: 065
     Dates: start: 20100108

REACTIONS (4)
  - BACK PAIN [None]
  - DYSPNOEA [None]
  - LUNG DISORDER [None]
  - PYREXIA [None]
